FAERS Safety Report 10715094 (Version 1)
Quarter: 2015Q1

REPORT INFORMATION
  Report Type: Spontaneous
  Country: US (occurrence: US)
  Receive Date: 20150115
  Receipt Date: 20150115
  Transmission Date: 20150721
  Serious: Yes (Death, Other)
  Sender: FDA-Public Use
  Company Number: US-GLAXOSMITHKLINE-US2015GSK003101

PATIENT
  Age: 54 Year
  Sex: Female

DRUGS (9)
  1. QUETIAPINE [Suspect]
     Active Substance: QUETIAPINE
     Route: 048
  2. WARFARIN [Suspect]
     Active Substance: WARFARIN
     Route: 048
  3. ACE INHIBITORS [Suspect]
     Active Substance: UNSPECIFIED INGREDIENT
     Route: 048
  4. ACETAMINOPHEN + HYDROCODONE [Suspect]
     Active Substance: ACETAMINOPHEN\HYDROCODONE
     Route: 048
  5. SALICYLATE [Suspect]
     Active Substance: SALICYLIC ACID
     Route: 048
  6. SIMVASTATIN. [Suspect]
     Active Substance: SIMVASTATIN
     Route: 048
  7. CARVEDILOL. [Suspect]
     Active Substance: CARVEDILOL
     Route: 048
  8. BUPROPION [Suspect]
     Active Substance: BUPROPION
     Route: 048
  9. BETA BLOCKER [Suspect]
     Active Substance: UNSPECIFIED INGREDIENT
     Route: 048

REACTIONS (1)
  - Completed suicide [Fatal]
